FAERS Safety Report 4799839-2 (Version None)
Quarter: 2005Q4

REPORT INFORMATION
  Report Type: 
  Country: None (occurrence: None)
  Receive Date: 20051013
  Receipt Date: 20050928
  Transmission Date: 20060501
  Serious: Yes (Death, Hospitalization)
  Sender: FDA-Public Use
  Company Number: JP_050907627

PATIENT
  Age: 88 Year
  Sex: Female

DRUGS (8)
  1. EVISTA [Suspect]
     Indication: OSTEOPOROSIS
     Dosage: 60 MG/1 DAY
     Dates: start: 20050208
  2. APONOL (IFENPRODIL TARTRATE) [Concomitant]
  3. VITAMIN D3 [Concomitant]
  4. ASPARA-CA (ASPARTATE CALCIUM) [Concomitant]
  5. GLAKAY (MENATETRENONE) [Concomitant]
  6. METHYCOBAL (MECOBALAMIN) [Concomitant]
  7. SELBEX (TEPRENONE) [Concomitant]
  8. OPALMON (LIMAPROST) [Concomitant]

REACTIONS (3)
  - CARDIAC DISORDER [None]
  - GENERAL PHYSICAL HEALTH DETERIORATION [None]
  - VOMITING [None]
